FAERS Safety Report 9330538 (Version 2)
Quarter: 2013Q2

REPORT INFORMATION
  Report Type: Spontaneous
  Country: FR (occurrence: FR)
  Receive Date: 20130605
  Receipt Date: 20130621
  Transmission Date: 20140414
  Serious: Yes (Other)
  Sender: FDA-Public Use
  Company Number: FR-SUN PHARMACEUTICAL INDUSTRIES LTD-2013SUN00668

PATIENT
  Age: 61 Year
  Sex: Female

DRUGS (7)
  1. GEMCITABINE SUN 200 MG POUDRE POUR SOLUTION POUR PERFUSION [Suspect]
     Indication: CHOLANGIOCARCINOMA
     Dosage: 1000 MG/M2, UNK
     Route: 065
  2. GEMCITABINE SUN 200 MG POUDRE POUR SOLUTION POUR PERFUSION [Suspect]
     Dosage: DOSE REDUCTION BY 20%
     Route: 065
  3. OXALIPLATIN [Suspect]
     Indication: CHOLANGIOCARCINOMA
     Dosage: 100 MG/M2 ON DAY 1 AND 15 OF CYCLE
     Route: 065
  4. OXALIPLATIN [Suspect]
     Dosage: DOSE REDUCTION BY 20%
     Route: 065
  5. ATENOLOL [Concomitant]
     Indication: HYPERTENSION
     Dosage: 100 MG PER DAY
  6. ROSUVASTATIN [Concomitant]
     Indication: DYSLIPIDAEMIA
     Dosage: 10 MG PER DAY
  7. EZETIMIBE [Concomitant]
     Indication: DYSLIPIDAEMIA
     Dosage: 10 MG, PER DAY

REACTIONS (2)
  - Nodular regenerative hyperplasia [Recovered/Resolved]
  - Thrombocytopenia [Recovered/Resolved]
